FAERS Safety Report 8958558 (Version 1)
Quarter: 2012Q4

REPORT INFORMATION
  Report Type: Spontaneous
  Country: GB (occurrence: None)
  Receive Date: 20121203
  Receipt Date: 20121203
  Transmission Date: 20130627
  Serious: Yes (Hospitalization)
  Sender: FDA-Public Use
  Company Number: GB-BANPHARM-20120379

PATIENT
  Age: 90 Year
  Sex: Female

DRUGS (2)
  1. IBUPROFEN [Suspect]
     Route: 048
     Dates: start: 20041202
  2. BENDROFLUAZIDE [Concomitant]
     Route: 048

REACTIONS (3)
  - Upper gastrointestinal haemorrhage [None]
  - Haematemesis [None]
  - Gastrooesophageal reflux disease [None]
